FAERS Safety Report 18171382 (Version 1)
Quarter: 2020Q3

REPORT INFORMATION
  Report Type: Spontaneous
  Country: FR (occurrence: FR)
  Receive Date: 20200819
  Receipt Date: 20200819
  Transmission Date: 20201103
  Serious: Yes (Life-Threatening, Hospitalization)
  Sender: FDA-Public Use
  Company Number: FR-MYLANLABS-2020M1070673

PATIENT
  Age: 62 Year
  Sex: Male

DRUGS (24)
  1. BISACODYL. [Concomitant]
     Active Substance: BISACODYL
     Indication: BOWEL PREPARATION
     Dosage: UNK
     Route: 048
  2. SUFENTANIL [Concomitant]
     Active Substance: SUFENTANIL
     Indication: INDUCTION OF ANAESTHESIA
     Dosage: 20 MICROGRAM
     Route: 065
  3. RINGER LACTATE                     /00467901/ [Concomitant]
     Active Substance: SODIUM LACTATE
     Indication: VEHICLE SOLUTION USE
     Dosage: CEFOXITIN WAS INFUSED WITH RINGER^S LACTATE
  4. MAGNESIUM [Concomitant]
     Active Substance: MAGNESIUM
     Indication: ANAPHYLACTIC SHOCK
     Dosage: 1000 MILLIGRAM
     Route: 065
  5. ATROPINE. [Concomitant]
     Active Substance: ATROPINE
     Indication: ANAPHYLACTIC SHOCK
     Route: 065
  6. CISATRACURIUM. [Concomitant]
     Active Substance: CISATRACURIUM
     Indication: INDUCTION OF ANAESTHESIA
     Dosage: 14 MILLIGRAM
     Route: 065
  7. MAGNESIUM [Concomitant]
     Active Substance: MAGNESIUM
     Indication: RESUSCITATION
  8. EPINEPHRINE. [Interacting]
     Active Substance: EPINEPHRINE
     Indication: ANAPHYLACTIC SHOCK
     Dosage: UNK
     Route: 065
  9. EPINEPHRINE. [Interacting]
     Active Substance: EPINEPHRINE
     Indication: RESUSCITATION
  10. NOREPINEPHRINE. [Interacting]
     Active Substance: NOREPINEPHRINE
     Indication: ANAPHYLACTIC SHOCK
     Dosage: UNK
     Route: 065
  11. ATROPINE. [Concomitant]
     Active Substance: ATROPINE
     Indication: RESUSCITATION
  12. DOBUTAMINE [Concomitant]
     Active Substance: DOBUTAMINE HYDROCHLORIDE
     Indication: ANAPHYLACTIC SHOCK
     Dosage: UNK
     Route: 065
  13. NOREPINEPHRINE. [Interacting]
     Active Substance: NOREPINEPHRINE
     Indication: RESUSCITATION
  14. PROPOFOL. [Concomitant]
     Active Substance: PROPOFOL
     Indication: INDUCTION OF ANAESTHESIA
     Dosage: 300 MILLIGRAM
     Route: 065
  15. CALCIUM [Concomitant]
     Active Substance: CALCIUM
     Indication: ANAPHYLACTIC SHOCK
     Dosage: UNK
     Route: 065
  16. CALCIUM [Concomitant]
     Active Substance: CALCIUM
     Indication: RESUSCITATION
  17. AMIODARONE [Concomitant]
     Active Substance: AMIODARONE
     Indication: ANAPHYLACTIC SHOCK
     Dosage: 300 MILLIGRAM
     Route: 065
  18. CHLORHEXIDINE [Suspect]
     Active Substance: CHLORHEXIDINE
     Dosage: A CENTRAL CATHETER PREVIOUSLY SOAKED IN CHLORHEXIDINE WAS PLACED
     Route: 065
  19. DESFLURANE. [Concomitant]
     Active Substance: DESFLURANE
     Indication: MAINTENANCE OF ANAESTHESIA
     Dosage: UNK
     Route: 065
  20. AMIODARONE [Concomitant]
     Active Substance: AMIODARONE
     Indication: RESUSCITATION
  21. CHLORHEXIDINE [Suspect]
     Active Substance: CHLORHEXIDINE
     Indication: ANTI-INFECTIVE THERAPY
     Dosage: CHLORHEXIDINE DRAPE
     Route: 065
  22. BISOPROLOL [Suspect]
     Active Substance: BISOPROLOL
     Indication: HYPERTENSION
     Dosage: UNK
     Route: 065
  23. CEFOXITIN                          /00454702/ [Concomitant]
     Indication: ANTIBIOTIC PROPHYLAXIS
     Dosage: 2 GRAM; CEFOXITIN WAS INFUSED WITH RINGER^S LACTATE
  24. DOBUTAMINE [Concomitant]
     Active Substance: DOBUTAMINE HYDROCHLORIDE
     Indication: RESUSCITATION

REACTIONS (5)
  - Drug interaction [Unknown]
  - Anaphylactic shock [Recovered/Resolved]
  - Documented hypersensitivity to administered product [Unknown]
  - Therapeutic product effect decreased [Unknown]
  - Drug hypersensitivity [Recovered/Resolved]
